FAERS Safety Report 4836404-2 (Version None)
Quarter: 2005Q4

REPORT INFORMATION
  Report Type: 
  Country: None (occurrence: None)
  Receive Date: 20051123
  Receipt Date: 20051108
  Transmission Date: 20060501
  Serious: Yes (Hospitalization)
  Sender: FDA-Public Use
  Company Number: PHRM2005FR02929

PATIENT
  Age: 40 Year
  Sex: Male
  Weight: 74 kg

DRUGS (7)
  1. ACUPAN [Suspect]
     Dosage: 20 MG, QID
     Route: 042
     Dates: start: 20050826, end: 20050827
  2. PRIMPERAN INJ [Concomitant]
     Route: 042
     Dates: start: 20050826
  3. CELLCEPT [Suspect]
     Indication: BEHCET'S SYNDROME
     Dosage: 1 G, BID
     Route: 048
     Dates: start: 20050826
  4. CELLCEPT [Suspect]
     Route: 048
     Dates: start: 20040810, end: 20050315
  5. CORTANCYL [Concomitant]
     Dosage: 5 MG, DAILY
     Route: 048
     Dates: start: 20050826
  6. CORTANCYL [Concomitant]
     Dosage: 5 MG, DAILY
     Route: 048
     Dates: start: 20040810, end: 20050315
  7. GYNERGENE CAFEINE [Suspect]
     Dosage: 1 DF, BID
     Route: 048
     Dates: start: 20050826, end: 20050827

REACTIONS (9)
  - BALANCE DISORDER [None]
  - BLOOD LACTIC ACID INCREASED [None]
  - CONCOMITANT DISEASE AGGRAVATED [None]
  - DEAFNESS [None]
  - HEADACHE [None]
  - LEUKOENCEPHALOPATHY [None]
  - METABOLIC ACIDOSIS [None]
  - STATUS EPILEPTICUS [None]
  - VISUAL ACUITY REDUCED [None]
